FAERS Safety Report 16848649 (Version 1)
Quarter: 2019Q3

REPORT INFORMATION
  Report Type: Report from Study
  Country: CN (occurrence: CN)
  Receive Date: 20190925
  Receipt Date: 20190925
  Transmission Date: 20191005
  Serious: Yes (Hospitalization, Other)
  Sender: FDA-Public Use
  Company Number: CN-ROCHE-2264134

PATIENT
  Age: 55 Year
  Sex: Male
  Weight: 74 kg

DRUGS (1)
  1. AVASTIN [Suspect]
     Active Substance: BEVACIZUMAB
     Indication: COLORECTAL CANCER
     Route: 041
     Dates: start: 20170227

REACTIONS (5)
  - Intestinal obstruction [Unknown]
  - Abdominal distension [Unknown]
  - Asthenia [Unknown]
  - Haematochezia [Unknown]
  - Hypertension [Unknown]

NARRATIVE: CASE EVENT DATE: 20190206
